FAERS Safety Report 21285699 (Version 2)
Quarter: 2022Q3

REPORT INFORMATION
  Report Type: Report from Study
  Country: FR (occurrence: FR)
  Receive Date: 20220902
  Receipt Date: 20220909
  Transmission Date: 20221027
  Serious: Yes (Hospitalization)
  Sender: FDA-Public Use
  Company Number: FR-JNJFOC-20220858420

PATIENT
  Age: 3 Decade
  Sex: Male
  Weight: 71 kg

DRUGS (4)
  1. INFLIXIMAB [Suspect]
     Active Substance: INFLIXIMAB
     Indication: Inflammatory bowel disease
     Route: 041
     Dates: start: 20090403, end: 20161227
  2. STELARA [Concomitant]
     Active Substance: USTEKINUMAB
     Dates: start: 20180312, end: 201808
  3. STELARA [Concomitant]
     Active Substance: USTEKINUMAB
     Dates: start: 202109
  4. HULIO [Concomitant]
     Active Substance: ADALIMUMAB-FKJP

REACTIONS (1)
  - Crohn^s disease [Recovered/Resolved with Sequelae]

NARRATIVE: CASE EVENT DATE: 20220512
